FAERS Safety Report 21902419 (Version 1)
Quarter: 2023Q1

REPORT INFORMATION
  Report Type: Other
  Country: US (occurrence: US)
  Receive Date: 20230124
  Receipt Date: 20230124
  Transmission Date: 20230418
  Serious: Yes (Life-Threatening)
  Sender: FDA-Public Use
  Company Number: US-BoehringerIngelheim-2023-BI-213743

PATIENT
  Age: 78 Year
  Sex: Male

DRUGS (1)
  1. METALYSE [Suspect]
     Active Substance: TENECTEPLASE
     Indication: Ischaemic stroke
     Route: 042

REACTIONS (2)
  - Pericardial haemorrhage [Unknown]
  - Obstructive shock [Unknown]
